FAERS Safety Report 14075581 (Version 1)
Quarter: 2017Q4

REPORT INFORMATION
  Report Type: Spontaneous
  Country: GB (occurrence: GB)
  Receive Date: 20171011
  Receipt Date: 20171011
  Transmission Date: 20180321
  Serious: Yes (Other)
  Sender: FDA-Public Use
  Company Number: GB-GLAXOSMITHKLINE-GB2017152964

PATIENT
  Age: 3 Decade
  Sex: Male
  Weight: 63 kg

DRUGS (2)
  1. OXYTETRACYCLINE [Concomitant]
     Active Substance: OXYTETRACYCLINE
     Indication: ACNE
  2. DUAC [Suspect]
     Active Substance: BENZOYL PEROXIDE\CLINDAMYCIN PHOSPHATE
     Indication: ACNE
     Dosage: 1 DF, QD, APPLIED EVERY EVENING
     Route: 061

REACTIONS (1)
  - Inflammatory bowel disease [Not Recovered/Not Resolved]
